FAERS Safety Report 8157009-4 (Version None)
Quarter: 2012Q1

REPORT INFORMATION
  Report Type: 
  Country: None (occurrence: None)
  Receive Date: 20120222
  Receipt Date: 20120207
  Transmission Date: 20120608
  Serious: Yes (Other)
  Sender: FDA-Public Use
  Company Number: US-MERCK-1201USA03695

PATIENT
  Age: 52 Year
  Sex: Female

DRUGS (4)
  1. DELTACORTONE [Concomitant]
     Route: 065
  2. DICLOFENAC [Concomitant]
     Route: 065
  3. FOSAMAX [Suspect]
     Route: 048
  4. AZATHIOPRINE [Concomitant]
     Route: 065

REACTIONS (1)
  - FEMUR FRACTURE [None]
